FAERS Safety Report 6815588-0 (Version None)
Quarter: 2010Q3

REPORT INFORMATION
  Report Type: 
  Country: None (occurrence: None)
  Receive Date: 20100702
  Receipt Date: 20100629
  Transmission Date: 20110219
  Serious: Yes (Hospitalization)
  Sender: FDA-Public Use
  Company Number: FR-ROCHE-649535

PATIENT
  Sex: Female
  Weight: 107 kg

DRUGS (16)
  1. BEVACIZUMAB [Suspect]
     Dosage: CUMULATIVE DOSE: 8450 MG
     Route: 042
     Dates: start: 20090416
  2. FLUOROURACIL [Suspect]
     Dosage: CUMULATIVE DOSE: 4000 MG
     Route: 042
     Dates: start: 20090416
  3. EPIRUBICIN [Suspect]
     Dosage: CUMULATIVE DOSE: 800 MG
     Route: 042
     Dates: start: 20090416
  4. CYCLOPHOSPHAMIDE [Suspect]
     Dosage: FROM 16 APRIL 2009 TO 22 JUNE 2009 CUMULATIVE DOSE: 4000 MG
     Route: 042
     Dates: start: 20090416, end: 20090622
  5. TAXOTERE [Suspect]
     Dosage: FROM 13 TO 13 JULY 2009 CUMULATIVE DOSE: 200 MG
     Route: 042
     Dates: start: 20090713, end: 20090713
  6. PROCTOLOG [Concomitant]
  7. RIVOTRIL [Concomitant]
  8. NEXIUM [Concomitant]
  9. CITALOPRAM [Concomitant]
  10. INNOHEP [Concomitant]
  11. ACETAMINOPHEN [Concomitant]
  12. ZAMUDOL [Concomitant]
  13. DAFLON [Concomitant]
  14. GABAPENTIN [Concomitant]
  15. TERALITHE [Concomitant]
  16. TITANOREINE [Concomitant]

REACTIONS (3)
  - HYPOKALAEMIA [None]
  - MAJOR DEPRESSION [None]
  - RESPIRATORY FAILURE [None]
